FAERS Safety Report 13148494 (Version 2)
Quarter: 2017Q1

REPORT INFORMATION
  Report Type: Report from Study
  Country: CO (occurrence: CO)
  Receive Date: 20170124
  Receipt Date: 20170210
  Transmission Date: 20170428
  Serious: Yes (Life-Threatening, Other)
  Sender: FDA-Public Use
  Company Number: PHHY2017CO000893

PATIENT
  Age: 49 Year
  Sex: Male
  Weight: 72 kg

DRUGS (1)
  1. TASIGNA [Suspect]
     Active Substance: NILOTINIB
     Indication: CHRONIC MYELOID LEUKAEMIA
     Dosage: 2 DF (200 MG), Q12H (EVEY 12 HOURS)
     Route: 048
     Dates: start: 20100501

REACTIONS (18)
  - Blindness [Unknown]
  - Seizure [Unknown]
  - Chronic myeloid leukaemia [Unknown]
  - Fall [Unknown]
  - Blood glucose abnormal [Unknown]
  - Hypertension [Unknown]
  - Suicidal ideation [Unknown]
  - Malignant neoplasm progression [Unknown]
  - Metastases to central nervous system [Unknown]
  - Asthenia [Unknown]
  - Dry eye [Unknown]
  - Headache [Unknown]
  - Chest pain [Unknown]
  - Anxiety [Unknown]
  - Dizziness [Unknown]
  - Loss of consciousness [Unknown]
  - Syncope [Unknown]
  - Blood pressure abnormal [Unknown]

NARRATIVE: CASE EVENT DATE: 20170117
